FAERS Safety Report 8618013-2 (Version None)
Quarter: 2012Q3

REPORT INFORMATION
  Report Type: 
  Country: None (occurrence: None)
  Receive Date: 20120824
  Receipt Date: 20120222
  Transmission Date: 20120928
  Serious: No
  Sender: FDA-Public Use
  Company Number: US-ASTRAZENECA-2012SE06531

PATIENT
  Age: 33 Year
  Sex: Male

DRUGS (1)
  1. SYMBICORT [Suspect]
     Route: 055

REACTIONS (4)
  - RESPIRATORY DISORDER [None]
  - DRUG DOSE OMISSION [None]
  - WHEEZING [None]
  - MALAISE [None]
